FAERS Safety Report 10494120 (Version 1)
Quarter: 2014Q4

REPORT INFORMATION
  Report Type: Spontaneous
  Country: US (occurrence: None)
  Receive Date: 20141002
  Receipt Date: 20141002
  Transmission Date: 20150528
  Serious: Yes (Other)
  Sender: FDA-Public Use
  Company Number: None

PATIENT
  Age: 55 Year
  Weight: 86.18 kg

DRUGS (1)
  1. RAMIPRIL. [Suspect]
     Active Substance: RAMIPRIL
     Indication: HYPERTENSION
     Dosage: 1 PILL A DAY ONCE DAILY TAKEN BY MOUTH
     Route: 048

REACTIONS (9)
  - Chest pain [None]
  - Rash [None]
  - Blood pressure increased [None]
  - Hypoaesthesia [None]
  - Joint swelling [None]
  - Influenza like illness [None]
  - Insomnia [None]
  - Muscle spasms [None]
  - Lethargy [None]

NARRATIVE: CASE EVENT DATE: 20140902
